FAERS Safety Report 22819361 (Version 2)
Quarter: 2024Q2

REPORT INFORMATION
  Report Type: Spontaneous
  Country: US (occurrence: NG)
  Receive Date: 20230814
  Receipt Date: 20240628
  Transmission Date: 20240716
  Serious: Yes (Death, Other)
  Sender: FDA-Public Use
  Company Number: US-CIPLA LTD.-2023NG04868

PATIENT

DRUGS (4)
  1. DARUNAVIR [Suspect]
     Active Substance: DARUNAVIR
     Dosage: UNK (COURSE 1)
     Route: 064
     Dates: start: 20200326
  2. LAMIVUDINE\ZIDOVUDINE [Suspect]
     Active Substance: LAMIVUDINE\ZIDOVUDINE
     Dosage: UNK (COURSE 1)
     Route: 064
     Dates: start: 20211104
  3. RITONAVIR [Suspect]
     Active Substance: RITONAVIR
     Dosage: UNK (COURSE 1)
     Route: 064
     Dates: start: 20200326
  4. DOLUTEGRAVIR [Suspect]
     Active Substance: DOLUTEGRAVIR
     Dosage: UNK (COURSE 1)
     Route: 064
     Dates: start: 20200326, end: 20211103

REACTIONS (3)
  - Foetal death [Fatal]
  - Low birth weight baby [Unknown]
  - Foetal exposure during pregnancy [Unknown]

NARRATIVE: CASE EVENT DATE: 20220701
